FAERS Safety Report 12951753 (Version 3)
Quarter: 2016Q4

REPORT INFORMATION
  Report Type: Spontaneous
  Country: IT (occurrence: IT)
  Receive Date: 20161117
  Receipt Date: 20161129
  Transmission Date: 20170207
  Serious: Yes (Hospitalization, Other)
  Sender: FDA-Public Use
  Company Number: IT-JNJFOC-20161113875

PATIENT
  Age: 19 Year
  Sex: Female

DRUGS (5)
  1. TOPAMAX [Suspect]
     Active Substance: TOPIRAMATE
     Indication: EPILEPSY CONGENITAL
     Route: 048
  2. DEPAKIN [Suspect]
     Active Substance: VALPROATE SODIUM
     Indication: EPILEPSY CONGENITAL
     Route: 048
  3. FENOBARBITAL [Suspect]
     Active Substance: PHENOBARBITAL
     Indication: EPILEPSY CONGENITAL
     Route: 048
  4. CLINDAMYCIN. [Suspect]
     Active Substance: CLINDAMYCIN
     Indication: ANTIBIOTIC THERAPY
     Route: 065
  5. CEFTAZIDIME. [Suspect]
     Active Substance: CEFTAZIDIME
     Indication: ANTIBIOTIC THERAPY
     Route: 065

REACTIONS (6)
  - Nephrolithiasis [Unknown]
  - Psychomotor hyperactivity [Not Recovered/Not Resolved]
  - Hyperthyroidism [Recovering/Resolving]
  - Gastrooesophageal reflux disease [Unknown]
  - Rash [Recovered/Resolved]
  - Pyrexia [Recovered/Resolved]

NARRATIVE: CASE EVENT DATE: 20161030
